FAERS Safety Report 5703410-5 (Version None)
Quarter: 2008Q2

REPORT INFORMATION
  Report Type: 
  Country: None (occurrence: None)
  Receive Date: 20080411
  Receipt Date: 20080401
  Transmission Date: 20081010
  Serious: Yes (Other)
  Sender: FDA-Public Use
  Company Number: US-PFIZER INC-2008029091

PATIENT
  Sex: Female
  Weight: 54.4 kg

DRUGS (12)
  1. LYRICA [Suspect]
     Indication: FIBROMYALGIA
     Dates: start: 20080325, end: 20080327
  2. CITALOPRAM HYDROBROMIDE [Concomitant]
  3. LORAZEPAM [Concomitant]
  4. COUMADIN [Concomitant]
  5. REQUIP [Concomitant]
  6. CARDIZEM [Concomitant]
  7. MAGNESIUM [Concomitant]
  8. VITAMIN D [Concomitant]
  9. VITAMIN D [Concomitant]
  10. CALCIUM [Concomitant]
  11. GLUCOSAMINE [Concomitant]
  12. FOSAMAX [Concomitant]

REACTIONS (6)
  - ARTHRALGIA [None]
  - DIZZINESS [None]
  - EYE SWELLING [None]
  - MUSCULOSKELETAL PAIN [None]
  - NASAL OEDEMA [None]
  - PARAESTHESIA [None]
